FAERS Safety Report 14331865 (Version 1)
Quarter: 2017Q4

REPORT INFORMATION
  Report Type: Spontaneous
  Country: US (occurrence: US)
  Receive Date: 20171227
  Receipt Date: 20171227
  Transmission Date: 20180321
  Serious: No
  Sender: FDA-Public Use
  Company Number: None

PATIENT
  Age: 48 Year
  Sex: Female

DRUGS (10)
  1. HARVONI [Suspect]
     Active Substance: LEDIPASVIR\SOFOSBUVIR
     Indication: HEPATITIS C
     Route: 048
     Dates: start: 20171205, end: 20171227
  2. PROAIR HFA [Concomitant]
     Active Substance: ALBUTEROL SULFATE
  3. ATIVAN [Concomitant]
     Active Substance: LORAZEPAM
  4. PROZAC [Concomitant]
     Active Substance: FLUOXETINE HYDROCHLORIDE
  5. PROMETHAZINE [Concomitant]
     Active Substance: PROMETHAZINE\PROMETHAZINE HYDROCHLORIDE
  6. IBUPROFEN. [Concomitant]
     Active Substance: IBUPROFEN
  7. VISTARIL [Concomitant]
     Active Substance: HYDROXYZINE PAMOATE
  8. COZAAR [Concomitant]
     Active Substance: LOSARTAN POTASSIUM
  9. NORCO [Concomitant]
     Active Substance: ACETAMINOPHEN\HYDROCODONE BITARTRATE
  10. GABAPENTIN. [Concomitant]
     Active Substance: GABAPENTIN

REACTIONS (3)
  - Headache [None]
  - Insomnia [None]
  - Muscle spasms [None]

NARRATIVE: CASE EVENT DATE: 20171227
